FAERS Safety Report 8178845-4 (Version None)
Quarter: 2012Q1

REPORT INFORMATION
  Report Type: 
  Country: None (occurrence: None)
  Receive Date: 20120302
  Receipt Date: 20120223
  Transmission Date: 20120608
  Serious: Yes (Other)
  Sender: FDA-Public Use
  Company Number: JP-BRISTOL-MYERS SQUIBB COMPANY-16414146

PATIENT
  Age: 35 Year
  Sex: Male

DRUGS (1)
  1. BARACLUDE [Suspect]
     Dosage: RECEIVED FOR ABOUT 2 YEARS
     Route: 048
     Dates: start: 20100730, end: 20120210

REACTIONS (1)
  - COLITIS ISCHAEMIC [None]
